FAERS Safety Report 8102110-4 (Version None)
Quarter: 2012Q1

REPORT INFORMATION
  Report Type: 
  Country: None (occurrence: None)
  Receive Date: 20120131
  Receipt Date: 20120119
  Transmission Date: 20120608
  Serious: Yes (Hospitalization, Other)
  Sender: FDA-Public Use
  Company Number: US-ELI_LILLY_AND_COMPANY-US201201006592

PATIENT
  Sex: Female

DRUGS (2)
  1. BYETTA [Suspect]
  2. HUMALOG [Concomitant]
     Indication: DIABETES MELLITUS
     Dosage: UNK

REACTIONS (9)
  - BREAST OPERATION [None]
  - CATARACT [None]
  - KNEE OPERATION [None]
  - ROTATOR CUFF SYNDROME [None]
  - MOBILITY DECREASED [None]
  - SIGHT DISABILITY [None]
  - ROAD TRAFFIC ACCIDENT [None]
  - MUSCULOSKELETAL DISCOMFORT [None]
  - GLAUCOMA [None]
